FAERS Safety Report 6580288-1 (Version None)
Quarter: 2010Q1

REPORT INFORMATION
  Report Type: 
  Country: None (occurrence: None)
  Receive Date: 20100212
  Receipt Date: 20100202
  Transmission Date: 20100710
  Serious: Yes (Hospitalization)
  Sender: FDA-Public Use
  Company Number: US-GENZYME-LEUP-1000002

PATIENT
  Age: 22 Year
  Sex: Female

DRUGS (1)
  1. LEUPROLIDE ACETATE [Suspect]
     Indication: OFF LABEL USE
     Dosage: UNK, QD

REACTIONS (8)
  - ADENOMA BENIGN [None]
  - CEREBRAL INFARCTION [None]
  - CEREBROVASCULAR SPASM [None]
  - COMA [None]
  - NECROSIS [None]
  - OFF LABEL USE [None]
  - PITUITARY TUMOUR BENIGN [None]
  - VASOSPASM [None]
